FAERS Safety Report 20099771 (Version 1)
Quarter: 2021Q4

REPORT INFORMATION
  Report Type: Spontaneous
  Country: US (occurrence: US)
  Receive Date: 20211123
  Receipt Date: 20211123
  Transmission Date: 20220303
  Serious: No
  Sender: FDA-Public Use
  Company Number: US-JNJFOC-20211119147

PATIENT
  Sex: Male

DRUGS (5)
  1. INVEGA TRINZA [Suspect]
     Active Substance: PALIPERIDONE PALMITATE
     Indication: Product used for unknown indication
     Route: 030
  2. INVEGA TRINZA [Suspect]
     Active Substance: PALIPERIDONE PALMITATE
  3. INVEGA TRINZA [Suspect]
     Active Substance: PALIPERIDONE PALMITATE
  4. LITHIUM [Concomitant]
     Active Substance: LITHIUM
     Indication: Product used for unknown indication
     Route: 065
  5. SAPHRIS [Concomitant]
     Active Substance: ASENAPINE MALEATE
     Indication: Product used for unknown indication
     Route: 065

REACTIONS (4)
  - Anxiety [Unknown]
  - Depression [Unknown]
  - Off label use [Unknown]
  - Inappropriate schedule of product administration [Unknown]
